FAERS Safety Report 9271107 (Version 1)
Quarter: 2013Q2

REPORT INFORMATION
  Report Type: Report from Study
  Country: TR (occurrence: TR)
  Receive Date: 20130506
  Receipt Date: 20130506
  Transmission Date: 20140414
  Serious: Yes (Death, Hospitalization)
  Sender: FDA-Public Use
  Company Number: PHHY2012TR034122

PATIENT
  Age: 48 Year
  Sex: Male

DRUGS (3)
  1. ICL670A [Suspect]
     Indication: HAEMOSIDEROSIS
     Dosage: 1500 MG, UNK
     Route: 048
     Dates: start: 20110919
  2. LENALIDOMIDE [Concomitant]
  3. VITAMIN B12 [Concomitant]

REACTIONS (3)
  - Death [Fatal]
  - Disease recurrence [Not Recovered/Not Resolved]
  - Myelodysplastic syndrome [Not Recovered/Not Resolved]
